FAERS Safety Report 8678942 (Version 2)
Quarter: 2014Q1

REPORT INFORMATION
  Report Type: Report from Study
  Country: DE (occurrence: DE)
  Receive Date: 20120723
  Receipt Date: 20140227
  Transmission Date: 20141002
  Serious: Yes (Hospitalization, Other)
  Sender: FDA-Public Use
  Company Number: DE-ROCHE-1090523

PATIENT
  Age: 59 Year
  Sex: Female

DRUGS (10)
  1. TOCILIZUMAB [Suspect]
     Indication: RHEUMATOID ARTHRITIS
     Route: 042
     Dates: start: 20110830
  2. L-THYROXIN [Concomitant]
     Route: 065
     Dates: start: 1992
  3. VIGANTOLETTEN [Concomitant]
     Route: 065
     Dates: start: 2002
  4. SPIRONOLACTON [Concomitant]
     Route: 065
     Dates: start: 2002
  5. CYMBALTA [Concomitant]
     Route: 065
     Dates: start: 2006
  6. SAROTEN RETARD [Concomitant]
     Route: 065
     Dates: start: 1992
  7. LYRICA [Concomitant]
     Route: 065
     Dates: start: 2004
  8. NALTREXONA [Concomitant]
     Route: 065
     Dates: start: 201003
  9. TILIDINE [Concomitant]
     Route: 065
     Dates: start: 20110606
  10. TILIDINE [Concomitant]
     Route: 065

REACTIONS (8)
  - Epistaxis [Recovered/Resolved]
  - Swollen tongue [Recovered/Resolved]
  - Oral mucosal exfoliation [Not Recovered/Not Resolved]
  - Hypersensitivity [Recovered/Resolved]
  - Fall [Unknown]
  - Contusion [Recovered/Resolved]
  - Contusion [Recovered/Resolved]
  - Concussion [Recovered/Resolved]
